FAERS Safety Report 6457532-4 (Version None)
Quarter: 2009Q4

REPORT INFORMATION
  Report Type: 
  Country: None (occurrence: None)
  Receive Date: 20091125
  Receipt Date: 20091113
  Transmission Date: 20100525
  Serious: Yes (Hospitalization, Other)
  Sender: FDA-Public Use
  Company Number: PHEH2009US14685

PATIENT
  Age: 41 Year
  Sex: Female

DRUGS (2)
  1. RECLAST [Suspect]
     Indication: OSTEOPOROSIS
     Dosage: 5 MG, ONCE/SINGLE
     Route: 042
     Dates: start: 20091015, end: 20091015
  2. PREDNISONE [Concomitant]
     Indication: SYSTEMIC LUPUS ERYTHEMATOSUS
     Dosage: UNK, UNK

REACTIONS (10)
  - ABDOMINAL PAIN [None]
  - BLOOD CREATININE INCREASED [None]
  - HYPOCALCAEMIA [None]
  - LIPASE INCREASED [None]
  - MYALGIA [None]
  - NAUSEA [None]
  - PAIN [None]
  - PANCREATITIS [None]
  - RENAL FAILURE [None]
  - VOMITING [None]
